FAERS Safety Report 18919053 (Version 5)
Quarter: 2021Q1

REPORT INFORMATION
  Report Type: Spontaneous
  Country: PL (occurrence: PL)
  Receive Date: 20210220
  Receipt Date: 20210318
  Transmission Date: 20210420
  Serious: Yes (Hospitalization)
  Sender: FDA-Public Use
  Company Number: NVSC2021PL034421

PATIENT
  Age: 65 Year
  Sex: Female

DRUGS (7)
  1. TORASEMIDE [Suspect]
     Active Substance: TORSEMIDE
     Indication: SLEEP APNOEA SYNDROME
     Dosage: 5 MG, QD (PROLONGED?RELEASE TABLET, 5 MILLIGRAM, DAILY)
     Route: 048
  2. TELMISARTAN [BAYER] [Suspect]
     Active Substance: TELMISARTAN
     Indication: HYPERTENSION
  3. METOPROLOL SUCCINATE. [Suspect]
     Active Substance: METOPROLOL SUCCINATE
     Indication: HYPERTENSION
  4. POTASSIUM CHLORIDE. [Concomitant]
     Active Substance: POTASSIUM CHLORIDE
     Indication: SLEEP APNOEA SYNDROME
     Dosage: 782 MG, QD (2 TABLETS OF 391 MG ONCE A DAY)
     Route: 048
  5. METOPROLOL SUCCINATE. [Suspect]
     Active Substance: METOPROLOL SUCCINATE
     Indication: SLEEP APNOEA SYNDROME
     Dosage: 50 MG, QD (50 MILLIGRAM, DAILY, PROLOGEND RELEASE TABLET)
     Route: 048
  6. TELMISARTAN [BAYER] [Suspect]
     Active Substance: TELMISARTAN
     Indication: SLEEP APNOEA SYNDROME
     Dosage: 160 MG, QD (160 MILLIGRAM, DAILY), AFTER BREAKFAST
     Route: 048
  7. TORASEMIDE [Suspect]
     Active Substance: TORSEMIDE
     Indication: HYPERTENSION

REACTIONS (12)
  - Hypotonia [Unknown]
  - Visual impairment [Unknown]
  - Hypertension [Unknown]
  - Dizziness [Unknown]
  - Photopsia [Unknown]
  - Somnolence [Unknown]
  - Atrioventricular block second degree [Unknown]
  - Hypotension [Unknown]
  - Overdose [Unknown]
  - Fatigue [Unknown]
  - Therapeutic product effect incomplete [Unknown]
  - Drug ineffective [Unknown]
